FAERS Safety Report 11808783 (Version 1)
Quarter: 2015Q4

REPORT INFORMATION
  Report Type: Spontaneous
  Country: US (occurrence: US)
  Receive Date: 20151207
  Receipt Date: 20151207
  Transmission Date: 20160305
  Serious: No
  Sender: FDA-Public Use
  Company Number: US-ROCHE-1591600

PATIENT
  Sex: Female
  Weight: 96.79 kg

DRUGS (2)
  1. PLAQUENIL [Concomitant]
     Active Substance: HYDROXYCHLOROQUINE SULFATE
     Indication: RHEUMATOID ARTHRITIS
     Route: 048
  2. ACTEMRA [Suspect]
     Active Substance: TOCILIZUMAB
     Indication: RHEUMATOID ARTHRITIS
     Dosage: ONLY ONE DOSE
     Route: 042
     Dates: start: 20150528, end: 20150528

REACTIONS (2)
  - Urinary tract infection [Recovered/Resolved with Sequelae]
  - Mouth ulceration [Unknown]
